FAERS Safety Report 10189162 (Version 3)
Quarter: 2014Q2

REPORT INFORMATION
  Report Type: Report from Study
  Country: US (occurrence: US)
  Receive Date: 20140522
  Receipt Date: 20140602
  Transmission Date: 20141212
  Serious: Yes (Other)
  Sender: FDA-Public Use
  Company Number: US-BAXTER-2014BAX023297

PATIENT
  Age: 59 Year
  Sex: Female

DRUGS (8)
  1. GAMMAGARD LIQUID [Suspect]
     Indication: COMBINED IMMUNODEFICIENCY
     Route: 065
     Dates: start: 201106
  2. GAMMAGARD LIQUID [Suspect]
     Route: 065
     Dates: start: 20140417, end: 20140417
  3. GAMMAGARD LIQUID [Suspect]
     Route: 065
     Dates: start: 20140509, end: 20140509
  4. NEURONTIN [Suspect]
     Indication: PRODUCT USED FOR UNKNOWN INDICATION
     Route: 065
  5. ACYCLOVIR [Concomitant]
     Indication: BLOOD IMMUNOGLOBULIN M INCREASED
     Route: 065
     Dates: start: 2010
  6. PRIVIGEN [Concomitant]
     Indication: COMBINED IMMUNODEFICIENCY
     Route: 065
     Dates: start: 2010
  7. GAMUNEX [Concomitant]
     Indication: COMBINED IMMUNODEFICIENCY
     Route: 065
  8. PREDNISONE [Concomitant]
     Indication: BURNING SENSATION
     Dosage: AFTER GAMUNEX INFUSIONS
     Route: 065

REACTIONS (9)
  - Epstein-Barr virus infection [Not Recovered/Not Resolved]
  - Blood immunoglobulin G increased [Not Recovered/Not Resolved]
  - Hyperhidrosis [Unknown]
  - Fatigue [Not Recovered/Not Resolved]
  - Somnolence [Recovered/Resolved]
  - Pain [Recovered/Resolved]
  - Hypertension [Unknown]
  - Heart rate increased [Unknown]
  - Asthenia [Unknown]
